FAERS Safety Report 9612295 (Version 1)
Quarter: 2013Q4

REPORT INFORMATION
  Report Type: Spontaneous
  Country: US (occurrence: US)
  Receive Date: 20131010
  Receipt Date: 20131010
  Transmission Date: 20140711
  Serious: No
  Sender: FDA-Public Use
  Company Number: US-ASTELLAS-2013US007571

PATIENT
  Age: 72 Year
  Sex: Male

DRUGS (2)
  1. MYRBETRIQ [Suspect]
     Indication: PRODUCT USED FOR UNKNOWN INDICATION
     Dosage: 50 MG, UNKNOWN/D
     Route: 048
     Dates: start: 20130620, end: 20130626
  2. MYRBETRIQ [Suspect]
     Dosage: 100 MG, UNKNOWN/D
     Route: 048
     Dates: start: 20130627, end: 20130708

REACTIONS (3)
  - Overdose [Unknown]
  - Intentional drug misuse [Unknown]
  - Drug ineffective [Unknown]
